FAERS Safety Report 5276850-9 (Version None)
Quarter: 2007Q1

REPORT INFORMATION
  Report Type: 
  Country: None (occurrence: None)
  Receive Date: 20070321
  Receipt Date: 20070109
  Transmission Date: 20070707
  Serious: Yes (Hospitalization)
  Sender: FDA-Public Use
  Company Number: 230201K07USA

PATIENT
  Age: 57 Year
  Sex: Male

DRUGS (1)
  1. REBIF [Suspect]
     Indication: MULTIPLE SCLEROSIS
     Dosage: 44 MCG, NOT REPORTED, SUBCUTANEOUS
     Route: 058
     Dates: start: 20050708, end: 20070102

REACTIONS (2)
  - BACTERIAL INFECTION [None]
  - NEPHROLITHIASIS [None]
